FAERS Safety Report 21405481 (Version 2)
Quarter: 2022Q4

REPORT INFORMATION
  Report Type: Spontaneous
  Country: US (occurrence: US)
  Receive Date: 20221004
  Receipt Date: 20221027
  Transmission Date: 20230113
  Serious: Yes (Hospitalization)
  Sender: FDA-Public Use
  Company Number: US-GBT-016783

PATIENT
  Age: 54 Year
  Sex: Male

DRUGS (1)
  1. OXBRYTA [Suspect]
     Active Substance: VOXELOTOR
     Indication: Product used for unknown indication
     Dosage: THERAPY START DATE: AROUND 14 OR 15TH JUN-222
     Route: 048
     Dates: start: 202206

REACTIONS (1)
  - Sickle cell anaemia with crisis [Recovering/Resolving]

NARRATIVE: CASE EVENT DATE: 20220913
